FAERS Safety Report 13994280 (Version 1)
Quarter: 2017Q3

REPORT INFORMATION
  Report Type: Spontaneous
  Country: US (occurrence: US)
  Receive Date: 20170920
  Receipt Date: 20170920
  Transmission Date: 20171128
  Serious: Yes (Other)
  Sender: FDA-Public Use
  Company Number: None

PATIENT
  Age: 62 Year
  Sex: Male
  Weight: 83.25 kg

DRUGS (1)
  1. LISINOPRIL. [Suspect]
     Active Substance: LISINOPRIL
     Indication: BLOOD PRESSURE MEASUREMENT
     Dosage: ?          QUANTITY:180 TABLET(S);?TWICE A DAY ORAL
     Route: 048
     Dates: start: 20170822, end: 20170905

REACTIONS (2)
  - Drug dispensing error [None]
  - Blood pressure inadequately controlled [None]

NARRATIVE: CASE EVENT DATE: 20170822
